FAERS Safety Report 16018570 (Version 1)
Quarter: 2019Q1

REPORT INFORMATION
  Report Type: Spontaneous
  Country: ES (occurrence: ES)
  Receive Date: 20190228
  Receipt Date: 20190228
  Transmission Date: 20190418
  Serious: Yes (Hospitalization)
  Sender: FDA-Public Use
  Company Number: ES-JAZZ-2019-ES-002663

PATIENT
  Age: 3 Year
  Sex: Female

DRUGS (3)
  1. ERWINASE [Suspect]
     Active Substance: ASPARAGINASE ERWINIA CHRYSANTHEMI
     Indication: ACUTE LYMPHOCYTIC LEUKAEMIA
     Dosage: 1.28 IU, PER 48 HOURS
     Route: 030
     Dates: start: 20180507, end: 20180511
  2. METHOTREXATE. [Interacting]
     Active Substance: METHOTREXATE
     Indication: ACUTE LYMPHOCYTIC LEUKAEMIA
     Dosage: 10 MG PER WEEK
     Route: 048
     Dates: start: 20180507, end: 20180515
  3. MERCAPTOPURINE. [Interacting]
     Active Substance: MERCAPTOPURINE
     Indication: ACUTE LYMPHOCYTIC LEUKAEMIA
     Dosage: 25 MG PER DAY
     Route: 048
     Dates: start: 20180423, end: 20180515

REACTIONS (1)
  - Catheter site infection [Recovered/Resolved]

NARRATIVE: CASE EVENT DATE: 20180511
